FAERS Safety Report 7564202-8 (Version None)
Quarter: 2011Q2

REPORT INFORMATION
  Report Type: 
  Country: None (occurrence: None)
  Receive Date: 20110622
  Receipt Date: 20110608
  Transmission Date: 20111010
  Serious: Yes (Hospitalization, Other)
  Sender: FDA-Public Use
  Company Number: PHHY2011BR50608

PATIENT
  Sex: Male

DRUGS (7)
  1. BISOPROLOL FUMARATE [Concomitant]
     Indication: ARRHYTHMIA
     Dosage: 1 TABLET DAILY
     Route: 048
  2. AMARYL [Concomitant]
     Indication: DIABETES MELLITUS
     Dosage: 1 TABLET DAILY
     Route: 048
  3. LERCANIDIPINE [Concomitant]
     Indication: HYPERTENSION
     Dosage: ONE TABLET DAILY
  4. CLONIDINE HYDROCHLORIDE [Concomitant]
     Indication: HYPERTENSION
     Dosage: 2 TABLET DAILY
     Route: 048
  5. VASLIP [Concomitant]
     Indication: BLOOD CHOLESTEROL INCREASED
     Dosage: 1 TABLET DAILY
     Route: 048
  6. INDAPEN SR [Concomitant]
     Indication: DIURETIC THERAPY
     Dosage: 1 TABLET DAILY
     Route: 048
  7. DIOVAN [Suspect]
     Indication: HYPERTENSION
     Dosage: 1 DF, DAILY
     Route: 048

REACTIONS (3)
  - FEMUR FRACTURE [None]
  - ROAD TRAFFIC ACCIDENT [None]
  - JOINT INJURY [None]
